FAERS Safety Report 8348395-0 (Version None)
Quarter: 2012Q2

REPORT INFORMATION
  Report Type: 
  Country: None (occurrence: None)
  Receive Date: 20120509
  Receipt Date: 20120502
  Transmission Date: 20120825
  Serious: Yes (Hospitalization)
  Sender: FDA-Public Use
  Company Number: FR-ELI_LILLY_AND_COMPANY-FR201205001384

PATIENT
  Age: 64 Year
  Sex: Female
  Weight: 111.3 kg

DRUGS (11)
  1. LEVOTHYROXINE SODIUM [Concomitant]
     Dosage: 75 UG, QD
  2. ZOLPIDEM [Concomitant]
  3. ATENOLOL [Concomitant]
     Dosage: 100 MG, QD
  4. GLUCOPHAGE [Concomitant]
     Dosage: 1000 MG, TID
  5. PLAVIX [Concomitant]
     Dosage: 75 MG, QD
  6. XALATAN [Concomitant]
     Dosage: 2 GTT, QD
  7. VALSARTAN  AND HYDROCHLOROTHIAZIDE [Concomitant]
     Indication: HYPERTENSION
  8. HUMALOG [Concomitant]
  9. ESCITALOPRAM [Concomitant]
     Dosage: 10 MG, QD
  10. BYETTA [Suspect]
     Indication: TYPE 1 DIABETES MELLITUS
     Dosage: 10 UG, QD
     Route: 058
     Dates: end: 20111129
  11. PRAVASTATIN [Concomitant]
     Dosage: 40 MG, QD

REACTIONS (3)
  - PANCREATITIS ACUTE [None]
  - OFF LABEL USE [None]
  - DIABETES MELLITUS INADEQUATE CONTROL [None]
